FAERS Safety Report 7656547-8 (Version None)
Quarter: 2011Q3

REPORT INFORMATION
  Report Type: 
  Country: None (occurrence: None)
  Receive Date: 20110804
  Receipt Date: 20110106
  Transmission Date: 20111222
  Serious: No
  Sender: FDA-Public Use
  Company Number: US-BAUSCH-2011BL000164

PATIENT
  Age: 77 Year
  Sex: Male

DRUGS (4)
  1. TERAZOSIN HCL [Concomitant]
  2. TRIAMTERENE [Concomitant]
  3. PRAVASTATIN [Concomitant]
  4. OPCON-A [Suspect]
     Indication: EYE IRRITATION
     Route: 047
     Dates: start: 20101219, end: 20101223

REACTIONS (2)
  - ERYTHEMA OF EYELID [None]
  - EYELID DISORDER [None]
